FAERS Safety Report 7370016-4 (Version None)
Quarter: 2011Q1

REPORT INFORMATION
  Report Type: 
  Country: None (occurrence: None)
  Receive Date: 20110323
  Receipt Date: 20110309
  Transmission Date: 20110831
  Serious: Yes (Hospitalization)
  Sender: FDA-Public Use
  Company Number: PHHY2011FR19649

PATIENT
  Age: 55 Year
  Sex: Male

DRUGS (3)
  1. DURAGESIC-100 [Suspect]
     Dosage: 75 MCG/H
     Route: 062
  2. MORPHINE [Concomitant]
  3. VOLTARENE LP [Suspect]
     Dosage: 75 MG, UNK
     Route: 048

REACTIONS (8)
  - VOMITING [None]
  - BRADYPNOEA [None]
  - MIOSIS [None]
  - RENAL FAILURE ACUTE [None]
  - COMA [None]
  - BRONCHIAL OBSTRUCTION [None]
  - OVERDOSE [None]
  - ALTERED STATE OF CONSCIOUSNESS [None]
